FAERS Safety Report 6616284-5 (Version None)
Quarter: 2010Q1

REPORT INFORMATION
  Report Type: 
  Country: None (occurrence: None)
  Receive Date: 20100305
  Receipt Date: 20100223
  Transmission Date: 20100710
  Serious: Yes (Hospitalization, Other)
  Sender: FDA-Public Use
  Company Number: US-PFIZER INC-2010024084

PATIENT
  Sex: Male

DRUGS (16)
  1. ADRIAMYCIN PFS [Suspect]
     Dosage: WEEKLY
     Route: 042
  2. PREDNISONE [Suspect]
     Indication: PROSTATE CANCER
     Dosage: 10 MG, 1X/DAY
     Route: 048
     Dates: start: 20090323, end: 20090915
  3. DEXAMETHASONE [Suspect]
     Indication: PREMEDICATION
     Dosage: 8 MG, AT 12H, 3H, AND 1H PRIOR TO DOCETAXEL
  4. DOCETAXEL [Suspect]
     Indication: PROSTATE CANCER
     Dosage: 75 MG/M2, (148 MG) 1/21 DAY
     Route: 042
     Dates: start: 20090323, end: 20090820
  5. DASATINIB [Suspect]
     Indication: PROSTATE CANCER
     Dosage: 100 MG, 1X/DAY
     Route: 048
     Dates: start: 20090324, end: 20090909
  6. PLACEBO [Suspect]
     Indication: PROSTATE CANCER
     Dosage: 100 MG, 1X/DAY
     Route: 048
     Dates: start: 20090324, end: 20090909
  7. AMBIEN [Concomitant]
     Dosage: UNK
     Dates: start: 20080101
  8. CITALOPRAM HYDROBROMIDE [Concomitant]
     Dosage: UNK
     Dates: start: 20080101
  9. LIPITOR [Concomitant]
     Dosage: UNK
     Dates: start: 20060101
  10. PREVACID [Concomitant]
     Dosage: UNK
     Dates: start: 19990101
  11. VITAMIN D [Concomitant]
     Dosage: UNK
     Dates: start: 20090101
  12. KETOCONAZOLE [Concomitant]
     Dosage: UNK
     Dates: start: 20090910
  13. REGLAN [Concomitant]
     Dosage: UNK
     Dates: start: 20090928
  14. PROMETHAZINE HYDROCHLORIDE [Concomitant]
     Dosage: UNK
     Dates: start: 20090928
  15. HYDROCODONE [Concomitant]
     Dosage: UNK
     Dates: start: 20090928
  16. RITALIN [Concomitant]
     Dosage: UNK
     Dates: start: 20090318, end: 20090616

REACTIONS (4)
  - MUSCULOSKELETAL PAIN [None]
  - NAUSEA [None]
  - RESPIRATORY ARREST [None]
  - VOMITING [None]
